FAERS Safety Report 4749106-8 (Version None)
Quarter: 2005Q3

REPORT INFORMATION
  Report Type: 
  Country: None (occurrence: None)
  Receive Date: 20050819
  Receipt Date: 20050808
  Transmission Date: 20060218
  Serious: Yes (Other)
  Sender: FDA-Public Use
  Company Number: US-ROCHE-413623

PATIENT
  Age: 52 Year
  Sex: Female
  Weight: 56.7 kg

DRUGS (5)
  1. PEGASYS [Suspect]
     Route: 058
     Dates: start: 20050413
  2. COPEGUS [Suspect]
     Route: 048
     Dates: start: 20050413
  3. WELLBUTRIN [Concomitant]
     Indication: DEPRESSION
     Route: 048
  4. TRAZODONE [Concomitant]
     Indication: DEPRESSION
     Route: 048
  5. DIOVAN [Concomitant]
     Indication: HYPERTENSION
     Route: 048

REACTIONS (12)
  - ASTHENIA [None]
  - DYSGEUSIA [None]
  - FATIGUE [None]
  - HAEMOGLOBIN DECREASED [None]
  - IRRITABLE BOWEL SYNDROME [None]
  - NAUSEA [None]
  - RETCHING [None]
  - STOMATITIS [None]
  - SYNCOPE [None]
  - VOMITING [None]
  - WEIGHT DECREASED [None]
  - WHITE BLOOD CELL COUNT DECREASED [None]
